FAERS Safety Report 7261873-0 (Version None)
Quarter: 2011Q1

REPORT INFORMATION
  Report Type: 
  Country: None (occurrence: None)
  Receive Date: 20110130
  Receipt Date: 20101129
  Transmission Date: 20110831
  Serious: No
  Sender: FDA-Public Use
  Company Number: US-ABBOTT-10P-163-0688798-00

PATIENT
  Sex: Male

DRUGS (7)
  1. VITAMIN B [Concomitant]
     Indication: VITAMIN SUPPLEMENTATION
  2. HUMIRA [Suspect]
     Dates: start: 20100101
  3. FOLIC ACID [Concomitant]
     Indication: VITAMIN SUPPLEMENTATION
  4. PRILOSEC [Concomitant]
     Indication: GASTROOESOPHAGEAL REFLUX DISEASE
  5. HUMIRA [Suspect]
     Indication: PSORIASIS
     Dates: start: 20070415, end: 20090701
  6. PROZAC [Concomitant]
     Indication: DEPRESSION
  7. TRIAMCINOLONE [Concomitant]
     Indication: PSORIASIS

REACTIONS (3)
  - BLOOD GLUCOSE INCREASED [None]
  - HEPATITIS C ANTIBODY POSITIVE [None]
  - HEPATITIS C [None]
